FAERS Safety Report 5340296-5 (Version None)
Quarter: 2007Q2

REPORT INFORMATION
  Report Type: 
  Country: None (occurrence: None)
  Receive Date: 20070531
  Receipt Date: 20070523
  Transmission Date: 20071010
  Serious: Yes (Congenital Anomaly, Other)
  Sender: FDA-Public Use
  Company Number: US-ROCHE-480490

PATIENT
  Weight: 2.4 kg

DRUGS (6)
  1. MYCOPHENOLATE MOFETIL [Suspect]
  2. MYCOPHENOLATE MOFETIL [Suspect]
  3. TACROLIMUS [Concomitant]
  4. PREDNISONE TAB [Concomitant]
  5. IRON [Concomitant]
  6. VITAMIN AND MINERAL PRENATAL SUPPLEMENT W/ FOLIC ACID CAP [Concomitant]

REACTIONS (3)
  - CONGENITAL HAND MALFORMATION [None]
  - CONGENITAL NAIL DISORDER [None]
  - PREMATURE BABY [None]
